FAERS Safety Report 13063089 (Version 2)
Quarter: 2017Q1

REPORT INFORMATION
  Report Type: Report from Study
  Country: IL (occurrence: IL)
  Receive Date: 20161227
  Receipt Date: 20170113
  Transmission Date: 20170428
  Serious: Yes (Hospitalization, Other)
  Sender: FDA-Public Use
  Company Number: IL-BRISTOL-MYERS SQUIBB COMPANY-BMS-2016-109419

PATIENT
  Sex: Male

DRUGS (1)
  1. NIVOLUMAB [Suspect]
     Active Substance: NIVOLUMAB
     Indication: HODGKIN^S DISEASE
     Dosage: 3 MG/KG, UNK
     Route: 065
     Dates: start: 20161208

REACTIONS (8)
  - Oropharyngeal pain [Unknown]
  - Photopheresis [Unknown]
  - Gamma-glutamyltransferase abnormal [Unknown]
  - Rash [Unknown]
  - Blood bilirubin increased [Unknown]
  - Erythema [Unknown]
  - Transaminases increased [Unknown]
  - Graft versus host disease [Unknown]
